FAERS Safety Report 21989336 (Version 1)
Quarter: 2023Q1

REPORT INFORMATION
  Report Type: Spontaneous
  Country: US (occurrence: US)
  Receive Date: 20230214
  Receipt Date: 20230214
  Transmission Date: 20230417
  Serious: No
  Sender: FDA-Public Use
  Company Number: US-CURIUM-2023000029

PATIENT
  Age: 60 Year
  Sex: Female
  Weight: 73 kg

DRUGS (3)
  1. IOFLUPANE I 123 [Suspect]
     Active Substance: IOFLUPANE I-123
     Indication: Parkinson^s disease
     Route: 040
     Dates: start: 20230112, end: 20230112
  2. ATIVAN [Concomitant]
     Active Substance: LORAZEPAM
     Indication: Product used for unknown indication
     Route: 065
  3. LUGOL [Concomitant]
     Active Substance: IODINE\POTASSIUM IODIDE
     Indication: Product used for unknown indication
     Route: 065

REACTIONS (1)
  - Radioisotope scan abnormal [Recovered/Resolved]

NARRATIVE: CASE EVENT DATE: 20230112
